FAERS Safety Report 5524048-9 (Version None)
Quarter: 2007Q4

REPORT INFORMATION
  Report Type: 
  Country: None (occurrence: None)
  Receive Date: 20071121
  Receipt Date: 20071102
  Transmission Date: 20080405
  Serious: No
  Sender: FDA-Public Use
  Company Number: US-BOEHRINGER INGELHEIM PHARMACEUTICALS, INC.-2007-BP-23038BP

PATIENT
  Age: 72 Year
  Sex: Female

DRUGS (6)
  1. SPIRIVA [Suspect]
     Indication: CHRONIC OBSTRUCTIVE PULMONARY DISEASE
     Route: 055
     Dates: start: 20060101
  2. SINGULAIR [Concomitant]
  3. ZYRTEC-D [Concomitant]
  4. ADVAIR DISKUS 100/50 [Concomitant]
  5. MUCINEX [Concomitant]
  6. XOPENEX [Concomitant]

REACTIONS (1)
  - DYSPNOEA [None]
